FAERS Safety Report 7415966-5 (Version None)
Quarter: 2011Q2

REPORT INFORMATION
  Report Type: 
  Country: None (occurrence: None)
  Receive Date: 20110414
  Receipt Date: 20091125
  Transmission Date: 20111010
  Serious: Yes (Other)
  Sender: FDA-Public Use
  Company Number: PHHY2009DE68342

PATIENT
  Sex: Female

DRUGS (4)
  1. EXTAVIA [Suspect]
     Dosage: 0.25 ML, Q72H
  2. EXTAVIA [Suspect]
     Dosage: 0.75 ML, UNK
  3. ANTIDEPRESSANTS [Concomitant]
  4. EXTAVIA [Suspect]
     Indication: MULTIPLE SCLEROSIS
     Dosage: 0.5 ML, QOD
     Route: 058
     Dates: start: 20091102, end: 20100301

REACTIONS (8)
  - GAIT DISTURBANCE [None]
  - SOMNOLENCE [None]
  - HEADACHE [None]
  - FEELING ABNORMAL [None]
  - FATIGUE [None]
  - VISUAL IMPAIRMENT [None]
  - INFLUENZA LIKE ILLNESS [None]
  - BODY TEMPERATURE INCREASED [None]
